FAERS Safety Report 26050764 (Version 1)
Quarter: 2025Q4

REPORT INFORMATION
  Report Type: Spontaneous
  Country: US (occurrence: US)
  Receive Date: 20251116
  Receipt Date: 20251116
  Transmission Date: 20260118
  Serious: No
  Sender: TIANJIN TIANYAO PHARMACEUTICALS CO.,LTD.
  Company Number: US-tianyaoyaoye-2025-tjpc-000003

PATIENT
  Sex: Male
  Weight: 53.52 kg

DRUGS (1)
  1. METHYLPREDNISOLONE [Suspect]
     Active Substance: METHYLPREDNISOLONE
     Indication: Prostatic artery embolisation
     Dosage: UNK
     Route: 048

REACTIONS (9)
  - Fluid retention [Unknown]
  - Muscular weakness [Unknown]
  - Myopathy [Unknown]
  - Skin fragility [Unknown]
  - Weight decreased [Unknown]
  - Cortisol increased [Unknown]
  - Blood testosterone decreased [Unknown]
  - Blood prolactin increased [Unknown]
  - Sarcopenia [Unknown]
